FAERS Safety Report 7162647-1 (Version None)
Quarter: 2010Q4

REPORT INFORMATION
  Report Type: 
  Country: None (occurrence: None)
  Receive Date: 20101215
  Receipt Date: 20101207
  Transmission Date: 20110411
  Serious: Yes (Death, Hospitalization, Other)
  Sender: FDA-Public Use
  Company Number: US-AMGEN-QUU403437

PATIENT

DRUGS (11)
  1. NPLATE [Suspect]
     Indication: IDIOPATHIC THROMBOCYTOPENIC PURPURA
     Dosage: 500 A?G, QWK
     Route: 058
     Dates: start: 20081119
  2. IMMUNOGLOBULINS [Concomitant]
     Dosage: UNK UNK, Q3WK
     Route: 042
     Dates: start: 20080627
  3. ALBUTEROL INHALER [Concomitant]
     Dosage: UNK UNK, UNK
  4. ESOMEPRAZOLE MAGNESIUM [Concomitant]
  5. LORATADINE [Concomitant]
  6. CLONAZEPAM [Concomitant]
  7. SIMVASTATIN [Concomitant]
     Dosage: 80 MG, QD
  8. ZOLPIDEM TARTRATE [Concomitant]
  9. TEMAZEPAM [Concomitant]
     Dosage: UNK UNK, PRN
  10. LORATADINE [Concomitant]
     Dosage: UNK UNK, QD
  11. UNSPECIFIED MEDICATION [Concomitant]

REACTIONS (9)
  - ACUTE RESPIRATORY FAILURE [None]
  - ASTHENIA [None]
  - CARDIAC FAILURE CONGESTIVE [None]
  - CARDIOMYOPATHY [None]
  - HYPERCHOLESTEROLAEMIA [None]
  - LYMPHADENOPATHY MEDIASTINAL [None]
  - NASOPHARYNGITIS [None]
  - PRESYNCOPE [None]
  - PULMONARY EMBOLISM [None]
